FAERS Safety Report 25072875 (Version 1)
Quarter: 2025Q1

REPORT INFORMATION
  Report Type: Spontaneous
  Country: AU (occurrence: AU)
  Receive Date: 20250313
  Receipt Date: 20250313
  Transmission Date: 20250409
  Serious: Yes (Other)
  Sender: Haleon PLC
  Company Number: AU-JNJFOC-20221148265

PATIENT
  Age: 66 Year
  Sex: Female

DRUGS (1)
  1. NICORETTE [Suspect]
     Active Substance: NICOTINE
     Indication: Smoking cessation therapy
     Route: 048

REACTIONS (3)
  - Drug dependence [Not Recovered/Not Resolved]
  - Temporomandibular pain and dysfunction syndrome [Recovered/Resolved with Sequelae]
  - Incorrect product administration duration [Not Recovered/Not Resolved]
